FAERS Safety Report 7445810-1 (Version None)
Quarter: 2011Q2

REPORT INFORMATION
  Report Type: 
  Country: None (occurrence: None)
  Receive Date: 20110429
  Receipt Date: 20110419
  Transmission Date: 20111010
  Serious: Yes (Death)
  Sender: FDA-Public Use
  Company Number: EG-SANOFI-AVENTIS-2011SA024803

PATIENT
  Age: 58 Year
  Sex: Male

DRUGS (1)
  1. INSULIN GLARGINE [Suspect]
     Indication: TYPE 2 DIABETES MELLITUS
     Route: 058
     Dates: start: 20100717, end: 20100903

REACTIONS (3)
  - LUNG NEOPLASM MALIGNANT [None]
  - HEPATIC NEOPLASM MALIGNANT [None]
  - RENAL CANCER [None]
